FAERS Safety Report 8839274 (Version 1)
Quarter: 2012Q4

REPORT INFORMATION
  Report Type: 
  Country: BR (occurrence: BR)
  Receive Date: 20121015
  Receipt Date: 20121015
  Transmission Date: 20130627
  Serious: Yes (Other)
  Sender: FDA-Public Use
  Company Number: BR-ACCORD-014884

PATIENT
  Age: 62 Year
  Sex: Female
  Weight: 68 kg

DRUGS (7)
  1. PACLITAXEL [Suspect]
     Indication: OVARIAN CANCER METASTATIC
     Dosage: Accord^ Paclitaxel
     Route: 042
     Dates: start: 20120925, end: 20120925
  2. DEXAMETHASONE [Concomitant]
     Indication: PREMEDICATION
     Route: 042
     Dates: start: 20120925, end: 20120925
  3. RANITIDINE [Concomitant]
     Route: 042
     Dates: start: 20120925, end: 20120925
  4. DIPHENHYDRAMINE [Concomitant]
     Route: 042
     Dates: start: 20120925, end: 20120925
  5. ONDANSETRON [Concomitant]
     Route: 042
     Dates: start: 20120925, end: 20120925
  6. FLUOXETINE [Concomitant]
     Dates: start: 2010
  7. LORAZEPAM [Concomitant]
     Dates: start: 2010

REACTIONS (3)
  - Tachycardia [Recovered/Resolved]
  - Hyperaemia [Recovered/Resolved]
  - Dyspnoea [Recovered/Resolved]
